FAERS Safety Report 5228514-5 (Version None)
Quarter: 2007Q1

REPORT INFORMATION
  Report Type: 
  Country: None (occurrence: None)
  Receive Date: 20070131
  Receipt Date: 20070131
  Transmission Date: 20070707
  Serious: Yes (Death)
  Sender: FDA-Public Use
  Company Number: None

PATIENT
  Age: 36 Year
  Sex: Female
  Weight: 95 kg

DRUGS (9)
  1. EMTRICITABINE [Suspect]
     Indication: HIV INFECTION
     Dosage: 200 MG QHS ORAL
     Route: 048
     Dates: start: 20060911, end: 20061229
  2. TENOFOVIR [Suspect]
     Indication: HIV INFECTION
     Dosage: 300 MG QHS ORAL
     Route: 048
     Dates: start: 20060911, end: 20061229
  3. EFAVIRENZ [Suspect]
     Indication: HIV INFECTION
     Dosage: 600 MG QHS ORAL
     Route: 048
     Dates: start: 20060911, end: 20061229
  4. MICROGYNON (ORAL CONTRACEPTIVE) [Concomitant]
  5. FERROUS SULFATE TAB [Concomitant]
  6. ALBENDAZOLE [Concomitant]
  7. CEFRIAXONE [Concomitant]
  8. FLUCONAZOLE [Concomitant]
  9. VITAMIN CAP [Concomitant]

REACTIONS (16)
  - ACUTE CORONARY SYNDROME [None]
  - AMNESIA [None]
  - ANAEMIA [None]
  - BLOOD PRESSURE INCREASED [None]
  - CD4 LYMPHOCYTES INCREASED [None]
  - CEREBROVASCULAR ACCIDENT [None]
  - DRUG HYPERSENSITIVITY [None]
  - FALL [None]
  - HEADACHE [None]
  - HELMINTHIC INFECTION [None]
  - INJURY [None]
  - MENINGITIS CRYPTOCOCCAL [None]
  - MENORRHAGIA [None]
  - PROCEDURAL COMPLICATION [None]
  - SUBARACHNOID HAEMORRHAGE [None]
  - VIRAL LOAD DECREASED [None]
